FAERS Safety Report 12237473 (Version 1)
Quarter: 2016Q2

REPORT INFORMATION
  Report Type: Spontaneous
  Country: CN (occurrence: CN)
  Receive Date: 20160405
  Receipt Date: 20160405
  Transmission Date: 20160815
  Serious: Yes (Other)
  Sender: FDA-Public Use
  Company Number: CN-BAXTER-2016BAX016801

PATIENT
  Age: 57 Year
  Sex: Female
  Weight: 50.2 kg

DRUGS (12)
  1. TAXOTERE [Suspect]
     Active Substance: DOCETAXEL
     Dosage: DOSE RE-INTRODUCED
     Route: 041
  2. 0.9% SODIUM CHLORIDE INJECTION [Suspect]
     Active Substance: SODIUM CHLORIDE
     Indication: OFF LABEL USE
     Dosage: DOSE RE-INTRODUCED
     Route: 041
  3. GLUCOSE [Suspect]
     Active Substance: DEXTROSE
     Indication: BREAST CANCER
     Route: 041
     Dates: start: 20150804, end: 20150804
  4. TAXOTERE [Suspect]
     Active Substance: DOCETAXEL
     Indication: BREAST CANCER
     Route: 041
     Dates: start: 20150804, end: 20150804
  5. XINBEI [Suspect]
     Active Substance: TROPISETRON HYDROCHLORIDE
     Indication: BREAST CANCER
     Route: 041
     Dates: start: 20150804, end: 20150804
  6. CARBOPLATIN. [Suspect]
     Active Substance: CARBOPLATIN
     Indication: BREAST CANCER
     Route: 041
     Dates: start: 20150804, end: 20150804
  7. SODIUM CHLORIDE. [Suspect]
     Active Substance: SODIUM CHLORIDE
     Dosage: DOSE RE-INTRODUCED
     Route: 041
  8. SODIUM CHLORIDE. [Suspect]
     Active Substance: SODIUM CHLORIDE
     Indication: BREAST CANCER
     Route: 041
     Dates: start: 20150804, end: 20150804
  9. XINBEI [Suspect]
     Active Substance: TROPISETRON HYDROCHLORIDE
     Dosage: DOSE RE-INTRODUCED
     Route: 041
  10. 0.9% SODIUM CHLORIDE INJECTION [Suspect]
     Active Substance: SODIUM CHLORIDE
     Indication: BREAST CANCER
     Route: 041
     Dates: start: 20150804, end: 20150804
  11. CARBOPLATIN. [Suspect]
     Active Substance: CARBOPLATIN
     Dosage: DOSE RE-INTRODUCED
     Route: 041
  12. GLUCOSE [Suspect]
     Active Substance: DEXTROSE
     Dosage: DOSE RE-INTRODUCED
     Route: 041

REACTIONS (1)
  - Bone marrow failure [Recovering/Resolving]

NARRATIVE: CASE EVENT DATE: 20150810
